FAERS Safety Report 8049752-2 (Version None)
Quarter: 2012Q1

REPORT INFORMATION
  Report Type: 
  Country: None (occurrence: None)
  Receive Date: 20120117
  Receipt Date: 20120109
  Transmission Date: 20120608
  Serious: Yes (Death)
  Sender: FDA-Public Use
  Company Number: US-ROCHE-1027022

PATIENT
  Sex: Male

DRUGS (7)
  1. ZELBORAF [Suspect]
     Indication: MALIGNANT MELANOMA
     Route: 048
  2. ZYRTEC [Concomitant]
     Route: 048
  3. ATROPINE [Concomitant]
  4. MORPHINE [Concomitant]
     Dosage: 20 MG/ML
     Route: 048
  5. ATIVAN [Concomitant]
     Dosage: 2 MG/ML
     Route: 048
  6. RITALIN [Concomitant]
     Route: 048
  7. SENOKOT [Concomitant]
     Dosage: 8.6-50 MG
     Route: 048

REACTIONS (1)
  - DEATH [None]
